FAERS Safety Report 13652277 (Version 1)
Quarter: 2017Q2

REPORT INFORMATION
  Report Type: Spontaneous
  Country: SI (occurrence: SI)
  Receive Date: 20170614
  Receipt Date: 20170614
  Transmission Date: 20170830
  Serious: Yes (Other)
  Sender: FDA-Public Use
  Company Number: SI-BAYER-2017-108031

PATIENT
  Sex: Male

DRUGS (1)
  1. STIVARGA [Suspect]
     Active Substance: REGORAFENIB
     Indication: COLON CANCER METASTATIC
     Dosage: UNK
     Dates: start: 20170301, end: 20170331

REACTIONS (5)
  - Decreased appetite [None]
  - Palmar-plantar erythrodysaesthesia syndrome [None]
  - Colon cancer metastatic [None]
  - Fatigue [None]
  - Hypertension [None]
